FAERS Safety Report 4508054-9 (Version None)
Quarter: 2004Q4

REPORT INFORMATION
  Report Type: 
  Country: None (occurrence: None)
  Receive Date: 20041123
  Receipt Date: 20031003
  Transmission Date: 20050328
  Serious: No
  Sender: FDA-Public Use
  Company Number: US-GLAXOSMITHKLINE-A0428699A

PATIENT
  Sex: Female

DRUGS (3)
  1. WELLBUTRIN [Suspect]
     Indication: DEPRESSION
     Dosage: 150MG PER DAY
     Route: 048
     Dates: start: 20031003
  2. WELLBUTRIN [Suspect]
     Route: 048
  3. THYROID TAB [Suspect]
     Indication: THYROID DISORDER
     Route: 065
     Dates: start: 20030927, end: 20031015

REACTIONS (4)
  - ANXIETY [None]
  - DRUG INTERACTION [None]
  - NERVOUSNESS [None]
  - TREMOR [None]
